FAERS Safety Report 7886035-5 (Version None)
Quarter: 2011Q4

REPORT INFORMATION
  Report Type: 
  Country: None (occurrence: None)
  Receive Date: 20111102
  Receipt Date: 20110706
  Transmission Date: 20120403
  Serious: No
  Sender: FDA-Public Use
  Company Number: US-AMGEN-USASP2011029102

PATIENT
  Age: 42 Year
  Sex: Female

DRUGS (1)
  1. ENBREL [Suspect]
     Indication: ANKYLOSING SPONDYLITIS
     Dosage: 50 MG, QWK
     Dates: start: 20110428

REACTIONS (6)
  - SINUSITIS [None]
  - ARTHROPOD BITE [None]
  - FALL [None]
  - SOFT TISSUE INFLAMMATION [None]
  - LYMPHADENOPATHY [None]
  - BRONCHITIS [None]
